FAERS Safety Report 8554613 (Version 6)
Quarter: 2013Q4

REPORT INFORMATION
  Report Type: Report from Study
  Country: JP (occurrence: JP)
  Receive Date: 20120509
  Receipt Date: 20131205
  Transmission Date: 20140711
  Serious: Yes (Death, Hospitalization, Other)
  Sender: FDA-Public Use
  Company Number: JP-GILEAD-2012-0054763

PATIENT
  Age: 45 Year
  Sex: Female
  Weight: 35 kg

DRUGS (43)
  1. AMBRISENTAN [Suspect]
     Indication: PULMONARY ARTERIAL HYPERTENSION
     Dosage: 5MG PER DAY
     Route: 048
     Dates: start: 20120405, end: 20120416
  2. AMBRISENTAN [Suspect]
     Dosage: 2.5MG PER DAY
     Route: 048
     Dates: start: 20120327, end: 20120404
  3. PREDONINE                          /00016201/ [Concomitant]
     Dosage: UNK
     Route: 048
  4. PREDONINE                          /00016201/ [Concomitant]
     Route: 048
  5. AZULFIDINE EN [Concomitant]
     Route: 048
  6. AZULFIDINE EN [Concomitant]
     Route: 048
  7. KLARICID                           /00984601/ [Concomitant]
     Route: 048
  8. KLARICID                           /00984601/ [Concomitant]
     Route: 048
  9. TAKEPRON [Concomitant]
     Route: 048
  10. TAKEPRON [Concomitant]
     Route: 048
  11. TAKEPRON [Concomitant]
     Route: 048
  12. TAKEPRON [Concomitant]
     Route: 048
  13. CYTOTEC [Concomitant]
     Route: 048
  14. CYTOTEC [Concomitant]
     Route: 048
  15. CYTOTEC [Concomitant]
     Route: 048
  16. CYTOTEC [Concomitant]
     Route: 048
  17. LOXONIN [Concomitant]
     Route: 065
  18. LOXONIN [Concomitant]
     Route: 048
  19. LOXONIN [Concomitant]
     Route: 048
  20. LOXONIN [Concomitant]
     Route: 048
  21. CALCIUM LACTATE [Concomitant]
     Route: 048
  22. CALCIUM LACTATE [Concomitant]
     Route: 048
  23. CALCIUM LACTATE [Concomitant]
     Route: 048
  24. VASOLAN                            /00014302/ [Concomitant]
     Route: 065
  25. VASOLAN                            /00014302/ [Concomitant]
     Route: 048
  26. GLAKAY [Concomitant]
     Route: 048
  27. GLAKAY [Concomitant]
     Route: 048
  28. GLAKAY [Concomitant]
     Route: 048
  29. GLAKAY [Concomitant]
     Route: 048
  30. ZYPREXA [Concomitant]
     Route: 065
  31. ZYPREXA [Concomitant]
     Route: 048
  32. ZYPREXA [Concomitant]
     Route: 048
  33. ZYPREXA [Concomitant]
     Route: 048
  34. SELENICA-R [Concomitant]
     Route: 048
  35. SELENICA-R [Concomitant]
     Route: 048
  36. SELENICA-R [Concomitant]
     Route: 048
  37. SELENICA-R [Concomitant]
     Route: 048
  38. DOGMATYL [Concomitant]
     Route: 065
  39. DOGMATYL [Concomitant]
     Route: 048
  40. BAKTAR [Concomitant]
     Route: 048
  41. FERROMIA [Concomitant]
     Route: 048
  42. FERROMIA [Concomitant]
     Route: 048
  43. VALACICLOVIR HYDROCHLORIDE [Concomitant]
     Route: 048

REACTIONS (1)
  - Hypoxia [Fatal]
